FAERS Safety Report 5165644-0 (Version None)
Quarter: 2006Q4

REPORT INFORMATION
  Report Type: 
  Country: None (occurrence: None)
  Receive Date: 20061122
  Receipt Date: 20061108
  Transmission Date: 20070319
  Serious: Yes (Hospitalization)
  Sender: FDA-Public Use
  Company Number: ENTC2006-0316

PATIENT
  Age: 76 Year
  Sex: Female

DRUGS (4)
  1. STALEVO 100 [Suspect]
     Indication: PARKINSON'S DISEASE
     Dosage: (50) 5X1 ORAL
     Route: 048
     Dates: start: 20060301, end: 20060419
  2. MADOPAR LT [Concomitant]
  3. SIFROL 018 [Concomitant]
  4. SEROQUEL [Concomitant]

REACTIONS (4)
  - ATRIOVENTRICULAR BLOCK FIRST DEGREE [None]
  - LOSS OF CONSCIOUSNESS [None]
  - NO REACTION ON PREVIOUS EXPOSURE TO DRUG [None]
  - SYNCOPE [None]
